FAERS Safety Report 4653125-X (Version None)
Quarter: 2005Q2

REPORT INFORMATION
  Report Type: 
  Country: None (occurrence: None)
  Receive Date: 20050503
  Receipt Date: 20050419
  Transmission Date: 20051028
  Serious: Yes (Other)
  Sender: FDA-Public Use
  Company Number: SUS1-2005-00081

PATIENT
  Age: 67 Year
  Sex: Female
  Weight: 76.2 kg

DRUGS (5)
  1. PENTASA [Suspect]
     Indication: CROHN'S DISEASE
     Dosage: 1000 MG,  4X/DAY: QID, ORAL
     Route: 048
     Dates: start: 20050127, end: 20050210
  2. ENTOCORT (BUDESONIDE) [Concomitant]
  3. BISOPROLOL W/HYDROCHLOROTHIAZDE(HYDROCHLOROTHIAZIDE, BISOPROLOL) [Concomitant]
  4. CALCIUM (CALCIUM) [Concomitant]
  5. LASIX [Concomitant]

REACTIONS (12)
  - ALANINE AMINOTRANSFERASE INCREASED [None]
  - ASPARTATE AMINOTRANSFERASE INCREASED [None]
  - BLOOD POTASSIUM DECREASED [None]
  - DIARRHOEA [None]
  - DRUG DOSE OMISSION [None]
  - HAEMATOCRIT DECREASED [None]
  - HAEMOGLOBIN DECREASED [None]
  - HYPOTENSION [None]
  - MUSCLE SPASMS [None]
  - PARALYSIS [None]
  - RASH GENERALISED [None]
  - RED CELL DISTRIBUTION WIDTH INCREASED [None]
